FAERS Safety Report 4835347-8 (Version None)
Quarter: 2005Q4

REPORT INFORMATION
  Report Type: 
  Country: None (occurrence: None)
  Receive Date: 20051114
  Receipt Date: 20051102
  Transmission Date: 20060501
  Serious: Yes (Hospitalization)
  Sender: FDA-Public Use
  Company Number: 2005-11-0271

PATIENT
  Age: 87 Year
  Sex: Female

DRUGS (1)
  1. NASONEX [Suspect]
     Indication: HYPERSENSITIVITY
     Dosage: NASAL SPRAY
     Route: 045
     Dates: start: 20050501

REACTIONS (2)
  - FALL [None]
  - PHARMACEUTICAL PRODUCT COMPLAINT [None]
